FAERS Safety Report 7345735-6 (Version None)
Quarter: 2011Q1

REPORT INFORMATION
  Report Type: 
  Country: None (occurrence: None)
  Receive Date: 20110311
  Receipt Date: 20110307
  Transmission Date: 20110831
  Serious: Yes (Hospitalization, Other)
  Sender: FDA-Public Use
  Company Number: GB-ELI_LILLY_AND_COMPANY-GB201008007938

PATIENT
  Sex: Male
  Weight: 88.8 kg

DRUGS (16)
  1. ASPIRIN [Concomitant]
     Dosage: 75 MG, DAILY (1/D)
  2. LEVOPROMAZIN [Concomitant]
     Dosage: 25 MG, EACH EVENING
  3. AMITRIPTYLINE [Concomitant]
     Dosage: 10 MG, EACH EVENING
  4. METOCLOPRAMIDE HCL [Concomitant]
     Dosage: 10 MG, 3/D
  5. DURAGESIC-50 [Concomitant]
     Dosage: 12 MG, OTHER
  6. ACYCLOVIR [Concomitant]
     Dosage: 800 MG, OTHER
  7. NECITUMUMAB (11F8) (LY3012211) [Suspect]
     Indication: NON-SMALL CELL LUNG CANCER STAGE IV
     Dosage: 800 MG, UNK
     Dates: start: 20100806, end: 20100806
  8. GEMCITABINE HYDROCHLORIDE [Suspect]
     Indication: NON-SMALL CELL LUNG CANCER STAGE IV
     Dosage: 2500 MG, UNK
     Dates: start: 20100806, end: 20100806
  9. ADIZEM [Concomitant]
     Dosage: 200 MG, DAILY (1/D)
  10. LUMIGAN [Concomitant]
     Dosage: 3 MG, UNK
  11. OMEPRAZOLE [Concomitant]
     Dosage: 20 MG, DAILY (1/D)
  12. ZOPICLONE [Concomitant]
     Dosage: 75 MG, EACH EVENING
  13. CISPLATIN [Suspect]
     Indication: NON-SMALL CELL LUNG CANCER STAGE IV
     Dosage: 150 MG, UNK
     Dates: start: 20100806, end: 20100806
  14. AMIAS [Concomitant]
     Dosage: 2 MG, DAILY (1/D)
  15. CETIRIZINE HCL [Concomitant]
     Dosage: 10 MG, UNK
     Dates: end: 20100826
  16. VENTOLIN                                /SCH/ [Concomitant]
     Dosage: UNK, AS NEEDED

REACTIONS (3)
  - NEUTROPENIA [None]
  - HAEMOGLOBIN DECREASED [None]
  - HAEMATOCHEZIA [None]
